FAERS Safety Report 8022623-3 (Version None)
Quarter: 2012Q1

REPORT INFORMATION
  Report Type: 
  Country: None (occurrence: None)
  Receive Date: 20120104
  Receipt Date: 20111228
  Transmission Date: 20120608
  Serious: Yes (Congenital Anomaly)
  Sender: FDA-Public Use
  Company Number: FR-GLAXOSMITHKLINE-B0771768A

PATIENT
  Sex: Male

DRUGS (2)
  1. DIHYDROERGOTAMINE MESYLATE [Suspect]
     Indication: MIGRAINE WITH AURA
     Route: 064
  2. PAROXETINE HCL [Suspect]
     Indication: PRODUCT USED FOR UNKNOWN INDICATION
     Route: 064

REACTIONS (3)
  - FOETAL EXPOSURE DURING PREGNANCY [None]
  - ATRIOVENTRICULAR SEPTAL DEFECT [None]
  - PYELOCALIECTASIS [None]
